FAERS Safety Report 13298650 (Version 2)
Quarter: 2017Q3

REPORT INFORMATION
  Report Type: Spontaneous
  Country: US (occurrence: US)
  Receive Date: 20170306
  Receipt Date: 20170714
  Transmission Date: 20171127
  Serious: Yes (Hospitalization, Other)
  Sender: FDA-Public Use
  Company Number: US-JNJFOC-20170303212

PATIENT
  Age: 56 Year
  Sex: Female

DRUGS (1)
  1. INVOKANA [Suspect]
     Active Substance: CANAGLIFLOZIN
     Indication: DIABETES MELLITUS
     Route: 048
     Dates: start: 201310, end: 201503

REACTIONS (9)
  - Diabetic ketoacidosis [Unknown]
  - Embolism [Unknown]
  - Foot fracture [Recovering/Resolving]
  - Cerebrovascular accident [Recovering/Resolving]
  - Renal injury [Unknown]
  - Fall [Recovering/Resolving]
  - Transient ischaemic attack [Recovering/Resolving]
  - Myocardial infarction [Unknown]
  - Cardiovascular disorder [Unknown]

NARRATIVE: CASE EVENT DATE: 201503
